FAERS Safety Report 22047889 (Version 6)
Quarter: 2023Q2

REPORT INFORMATION
  Report Type: Spontaneous
  Country: AU (occurrence: AU)
  Receive Date: 20230301
  Receipt Date: 20230511
  Transmission Date: 20230721
  Serious: Yes (Other)
  Sender: FDA-Public Use
  Company Number: AU-PFIZER INC-PV202300037755

PATIENT
  Age: 30 Year
  Sex: Male

DRUGS (7)
  1. INFLIXIMAB [Suspect]
     Active Substance: INFLIXIMAB
     Dosage: UNK
     Route: 065
  2. ADALIMUMAB [Suspect]
     Active Substance: ADALIMUMAB
     Dosage: UNK
     Route: 065
  3. METHOTREXATE SODIUM [Suspect]
     Active Substance: METHOTREXATE SODIUM
     Dosage: UNK
     Route: 065
  4. METHOTREXATE SODIUM [Suspect]
     Active Substance: METHOTREXATE SODIUM
     Dosage: UNK
     Route: 065
  5. AZATHIOPRINE [Suspect]
     Active Substance: AZATHIOPRINE
     Dosage: UNK
     Route: 065
  6. MYCOPHENOLIC ACID [Suspect]
     Active Substance: MYCOPHENOLIC ACID
     Dosage: UNK
     Route: 065
  7. UPADACITINIB HEMIHYDRATE [Suspect]
     Active Substance: UPADACITINIB HEMIHYDRATE
     Dosage: UNK
     Route: 065

REACTIONS (4)
  - Systemic inflammatory response syndrome [Unknown]
  - Rash [Unknown]
  - Off label use [Unknown]
  - Drug ineffective for unapproved indication [Unknown]
